FAERS Safety Report 24731015 (Version 1)
Quarter: 2024Q4

REPORT INFORMATION
  Report Type: Spontaneous
  Country: US (occurrence: None)
  Receive Date: 20241213
  Receipt Date: 20241213
  Transmission Date: 20250115
  Serious: Yes (Death, Hospitalization)
  Sender: Public
  Company Number: None

PATIENT
  Sex: Female
  Weight: 66.1 kg

DRUGS (3)
  1. CARBOPLATIN [Suspect]
     Active Substance: CARBOPLATIN
  2. TAXOTERE [Suspect]
     Active Substance: DOCETAXEL
  3. PEMBROLIZUMAB [Suspect]
     Active Substance: PEMBROLIZUMAB

REACTIONS (17)
  - Nausea [None]
  - Vomiting [None]
  - Diarrhoea [None]
  - Drug ineffective [None]
  - Tachycardia [None]
  - Agitation [None]
  - Hypertension [None]
  - Tachypnoea [None]
  - Blood lactic acid increased [None]
  - Blood potassium decreased [None]
  - White blood cell count decreased [None]
  - Blood urea increased [None]
  - Blood creatine increased [None]
  - Supraventricular tachycardia [None]
  - Pulse absent [None]
  - Oedema [None]
  - Cardiac arrest [None]

NARRATIVE: CASE EVENT DATE: 20241205
